FAERS Safety Report 24224681 (Version 5)
Quarter: 2025Q3

REPORT INFORMATION
  Report Type: Report from Study
  Country: US (occurrence: US)
  Receive Date: 20240819
  Receipt Date: 20250810
  Transmission Date: 20251020
  Serious: Yes (Other)
  Sender: ALEXION PHARMACEUTICALS
  Company Number: US-ALXN-202408USA000739US

PATIENT
  Sex: Female

DRUGS (1)
  1. STRENSIQ [Suspect]
     Active Substance: ASFOTASE ALFA
     Indication: Hypophosphatasia
     Route: 065

REACTIONS (9)
  - Multiple fractures [Unknown]
  - Hypoacusis [Unknown]
  - Nasopharyngeal tumour [Unknown]
  - Thyroid disorder [Unknown]
  - Osteoporosis [Unknown]
  - Spinal stenosis [Unknown]
  - Clavicle fracture [Unknown]
  - Foot fracture [Unknown]
  - Ear infection [Unknown]
